FAERS Safety Report 13077508 (Version 1)
Quarter: 2016Q4

REPORT INFORMATION
  Report Type: Spontaneous
  Country: FR (occurrence: FR)
  Receive Date: 20161231
  Receipt Date: 20161231
  Transmission Date: 20170207
  Serious: Yes (Hospitalization)
  Sender: FDA-Public Use
  Company Number: FR-ACCORD-047039

PATIENT
  Age: 63 Year
  Sex: Female

DRUGS (3)
  1. FLUOROURACIL ACCORD [Suspect]
     Active Substance: FLUOROURACIL
     Indication: COLORECTAL CANCER
     Dosage: STRENGTH: 50 MG/ML, FIRST COURSE
     Route: 042
     Dates: start: 20161125
  2. FOLINIC ACID [Suspect]
     Active Substance: LEUCOVORIN
     Indication: COLORECTAL CANCER
     Dosage: FIRST COURSE
     Route: 042
     Dates: start: 20161125
  3. OXALIPLATIN HOSPIRA [Suspect]
     Active Substance: OXALIPLATIN
     Indication: COLORECTAL CANCER
     Dosage: FIRST COURSE
     Route: 042
     Dates: start: 20161125

REACTIONS (5)
  - Bundle branch block left [Unknown]
  - Cardiac failure [Unknown]
  - Acute pulmonary oedema [Recovered/Resolved]
  - Hypertrophic cardiomyopathy [Unknown]
  - Respiratory acidosis [Unknown]

NARRATIVE: CASE EVENT DATE: 201612
